FAERS Safety Report 12448470 (Version 1)
Quarter: 2016Q2

REPORT INFORMATION
  Report Type: Spontaneous
  Country: US (occurrence: US)
  Receive Date: 20160608
  Receipt Date: 20160608
  Transmission Date: 20160815
  Serious: No
  Sender: FDA-Public Use
  Company Number: US-ASTRAZENECA-2015SE30201

PATIENT
  Age: 479 Day
  Sex: Male

DRUGS (6)
  1. SYNAGIS [Suspect]
     Active Substance: PALIVIZUMAB
     Route: 030
     Dates: start: 20141206
  2. SYNAGIS [Suspect]
     Active Substance: PALIVIZUMAB
     Dosage: 50MG/ 0.5ML
     Route: 030
     Dates: start: 20150427
  3. SYNAGIS [Suspect]
     Active Substance: PALIVIZUMAB
     Route: 030
     Dates: start: 20150217
  4. SYNAGIS [Suspect]
     Active Substance: PALIVIZUMAB
     Route: 030
     Dates: start: 20150217
  5. SYNAGIS [Suspect]
     Active Substance: PALIVIZUMAB
     Route: 030
     Dates: start: 20150113
  6. SYNAGIS [Suspect]
     Active Substance: PALIVIZUMAB
     Dosage: 100MG/ 0.5 ML
     Route: 030
     Dates: start: 20150427

REACTIONS (1)
  - Pyrexia [Recovered/Resolved]

NARRATIVE: CASE EVENT DATE: 20150317
